FAERS Safety Report 24008941 (Version 1)
Quarter: 2024Q2

REPORT INFORMATION
  Report Type: Spontaneous
  Country: US (occurrence: US)
  Receive Date: 20240625
  Receipt Date: 20240625
  Transmission Date: 20240716
  Serious: No
  Sender: FDA-Public Use
  Company Number: US-BAUSCH-BL-2024-009502

PATIENT
  Sex: Male

DRUGS (2)
  1. XIFAXAN [Suspect]
     Active Substance: RIFAXIMIN
     Indication: Liver disorder
     Dosage: 550 MG, 1 TABLET TWICE DAILY
     Route: 065
     Dates: start: 202309
  2. LACTULOSE [Suspect]
     Active Substance: LACTULOSE
     Indication: Liver disorder
     Route: 065
     Dates: start: 202309

REACTIONS (3)
  - Frequent bowel movements [Unknown]
  - Dizziness [Unknown]
  - Fatigue [Unknown]
